FAERS Safety Report 8999902 (Version 1)
Quarter: 2013Q1

REPORT INFORMATION
  Report Type: Report from Study
  Country: US (occurrence: US)
  Receive Date: 20130102
  Receipt Date: 20130102
  Transmission Date: 20140127
  Serious: No
  Sender: FDA-Public Use
  Company Number: US-VERTEX PHARMACEUTICALS INC.-2012-026795

PATIENT
  Sex: Female
  Weight: 128 kg

DRUGS (4)
  1. VX-950 (TELAPREVIR) [Suspect]
     Indication: HEPATITIS C
     Dosage: 750 MG, TID
     Route: 048
     Dates: start: 2012
  2. PEGASYS [Suspect]
     Indication: HEPATITIS C
     Dosage: 180 ?G, QW
     Route: 058
     Dates: start: 2012
  3. RIBAPAK [Suspect]
     Indication: HEPATITIS C
     Dosage: 400 MG, BID
     Dates: start: 2012
  4. ALEVE [Concomitant]

REACTIONS (8)
  - White blood cell count decreased [Unknown]
  - Bronchitis [Unknown]
  - Dyspnoea exertional [Unknown]
  - Productive cough [Unknown]
  - Pulmonary congestion [Unknown]
  - Wheezing [Unknown]
  - Flushing [Unknown]
  - Asthenia [Unknown]
